FAERS Safety Report 9177751 (Version 1)
Quarter: 2012Q4

REPORT INFORMATION
  Report Type: 
  Country: US (occurrence: US)
  Receive Date: 20121009
  Receipt Date: 20121009
  Transmission Date: 20130627
  Serious: Yes (Hospitalization, Other)
  Sender: FDA-Public Use
  Company Number: US-RB-039745-12

PATIENT
  Age: 30 None
  Sex: Female

DRUGS (2)
  1. SUBOXONE FILM [Suspect]
     Indication: DRUG DEPENDENCE
     Dosage: Suboxone film; Dosing details not provided
     Route: 065
  2. SUBUTEX [Suspect]
     Indication: DRUG DEPENDENCE
     Route: 065
     Dates: start: 20120407, end: 20120801

REACTIONS (5)
  - Exposure during pregnancy [Recovered/Resolved]
  - Substance abuse [Not Recovered/Not Resolved]
  - Premature labour [Recovered/Resolved]
  - Complication of delivery [Recovered/Resolved]
  - Foetal heart rate decreased [Recovered/Resolved]
